FAERS Safety Report 9914626 (Version 10)
Quarter: 2017Q3

REPORT INFORMATION
  Report Type: Report from Study
  Country: BR (occurrence: BR)
  Receive Date: 20140220
  Receipt Date: 20170807
  Transmission Date: 20171128
  Serious: Yes (Other)
  Sender: FDA-Public Use
  Company Number: PHHY2014BR018974

PATIENT
  Age: 2 Year
  Sex: Female
  Weight: 18.8 kg

DRUGS (6)
  1. PHENOBARBITAL. [Interacting]
     Active Substance: PHENOBARBITAL
     Indication: SEIZURE
     Dosage: 40 DRP, QHS
     Route: 048
  2. EXJADE [Interacting]
     Active Substance: DEFERASIROX
     Dosage: 750 MG, (250 MG AND 500 MG)
     Route: 065
     Dates: start: 20170520
  3. FOLIC ACID. [Concomitant]
     Active Substance: FOLIC ACID
     Indication: HYPOVITAMINOSIS
     Dosage: 3 DF, QW3, (3 TIMES A WEEK)
     Route: 048
  4. EXJADE [Suspect]
     Active Substance: DEFERASIROX
     Indication: SICKLE CELL ANAEMIA
     Dosage: 35 MG/KG, QD (1 DF OF 500MG AND 1 DF OF 125MG)
     Route: 048
     Dates: start: 201306
  5. EXJADE [Interacting]
     Active Substance: DEFERASIROX
     Dosage: 750 MG, UNK (TABLET OF 500 MG AND ONE 225 MG)
     Route: 048
  6. AAS [Concomitant]
     Active Substance: ASPIRIN
     Indication: BLOOD DISORDER
     Dosage: 0.5 DF, QD
     Route: 065

REACTIONS (14)
  - Arthralgia [Not Recovered/Not Resolved]
  - Helminthic infection [Not Recovered/Not Resolved]
  - Fatigue [Not Recovered/Not Resolved]
  - Seizure [Recovered/Resolved]
  - Nasal disorder [Not Recovered/Not Resolved]
  - Drug interaction [Unknown]
  - Spinal pain [Unknown]
  - Serum ferritin increased [Unknown]
  - Vomiting [Recovered/Resolved]
  - Blood iron increased [Unknown]
  - Adenoidal disorder [Not Recovered/Not Resolved]
  - Snoring [Not Recovered/Not Resolved]
  - Abdominal pain [Not Recovered/Not Resolved]
  - Abdominal distension [Not Recovered/Not Resolved]

NARRATIVE: CASE EVENT DATE: 201401
